FAERS Safety Report 25412562 (Version 2)
Quarter: 2025Q3

REPORT INFORMATION
  Report Type: Spontaneous
  Country: US (occurrence: US)
  Receive Date: 20250609
  Receipt Date: 20250816
  Transmission Date: 20251021
  Serious: No
  Sender: ALEXION PHARMACEUTICALS
  Company Number: US-AstraZeneca-CH-00882574A

PATIENT
  Age: 77 Year
  Sex: Male

DRUGS (1)
  1. ULTOMIRIS [Suspect]
     Active Substance: RAVULIZUMAB-CWVZ
     Indication: Myasthenia gravis

REACTIONS (4)
  - Eyelid ptosis [Recovering/Resolving]
  - Muscular weakness [Recovering/Resolving]
  - Fall [Recovering/Resolving]
  - Wound [Recovering/Resolving]

NARRATIVE: CASE EVENT DATE: 20250501
